FAERS Safety Report 5392427-9 (Version None)
Quarter: 2007Q3

REPORT INFORMATION
  Report Type: 
  Country: None (occurrence: None)
  Receive Date: 20070720
  Receipt Date: 20070717
  Transmission Date: 20080115
  Serious: Yes (Hospitalization)
  Sender: FDA-Public Use
  Company Number: B0479826A

PATIENT
  Sex: Female
  Weight: 81 kg

DRUGS (1)
  1. TOPOTECAN [Suspect]
     Indication: OVARIAN CANCER
     Dosage: 2.43MG PER DAY
     Route: 042
     Dates: start: 20070702, end: 20070706

REACTIONS (4)
  - FEBRILE NEUTROPENIA [None]
  - PANCYTOPENIA [None]
  - PYREXIA [None]
  - URINARY TRACT INFECTION [None]
